FAERS Safety Report 22670067 (Version 3)
Quarter: 2023Q4

REPORT INFORMATION
  Report Type: Report from Study
  Country: JP (occurrence: JP)
  Receive Date: 20230704
  Receipt Date: 20231208
  Transmission Date: 20240109
  Serious: Yes (Death, Disabling, Other)
  Sender: FDA-Public Use
  Company Number: JP-002147023-NVSJ2023JP009365

PATIENT
  Age: 55 Year
  Sex: Female
  Weight: 54.1 kg

DRUGS (7)
  1. LUTATHERA [Suspect]
     Active Substance: LUTETIUM OXODOTREOTIDE LU-177
     Indication: Pancreatic neuroendocrine tumour
     Dosage: 7.3 GBQ
     Route: 042
     Dates: start: 20220316, end: 20220316
  2. LUTATHERA [Suspect]
     Active Substance: LUTETIUM OXODOTREOTIDE LU-177
     Dosage: 7.4 GBQ, QD
     Route: 042
     Dates: start: 20220602, end: 20220602
  3. LUTATHERA [Suspect]
     Active Substance: LUTETIUM OXODOTREOTIDE LU-177
     Dosage: 7.4 GBQ
     Route: 042
     Dates: start: 20220901, end: 20220901
  4. LUTATHERA [Suspect]
     Active Substance: LUTETIUM OXODOTREOTIDE LU-177
     Dosage: 7.1 GBQ
     Route: 042
     Dates: start: 20230427, end: 20230427
  5. ARGININE\LYSINE [Suspect]
     Active Substance: ARGININE\LYSINE
     Indication: Product used for unknown indication
     Dosage: UNK
     Route: 065
  6. ALOXI [Concomitant]
     Active Substance: PALONOSETRON HYDROCHLORIDE
     Indication: Prophylaxis of nausea and vomiting
     Dosage: UNK
     Route: 065
  7. ALOXI [Concomitant]
     Active Substance: PALONOSETRON HYDROCHLORIDE
     Dosage: UNK
     Route: 065

REACTIONS (6)
  - Hepatic encephalopathy [Fatal]
  - Anaemia [Recovered/Resolved]
  - Hepatic failure [Recovered/Resolved]
  - Concomitant disease aggravated [Recovered/Resolved]
  - Lower limb fracture [Recovering/Resolving]
  - Inappropriate schedule of product administration [Unknown]

NARRATIVE: CASE EVENT DATE: 20221011
